FAERS Safety Report 6044929-X (Version None)
Quarter: 2009Q1

REPORT INFORMATION
  Report Type: 
  Country: None (occurrence: None)
  Receive Date: 20090116
  Receipt Date: 20090116
  Transmission Date: 20090719
  Serious: Yes (Life-Threatening, Hospitalization)
  Sender: FDA-Public Use
  Company Number: None

PATIENT
  Age: 74 Year
  Sex: Male
  Weight: 66.7 kg

DRUGS (2)
  1. KEPPRA [Suspect]
     Dosage: 500 MG BID PO
     Route: 048
     Dates: start: 20080317, end: 20080327
  2. DIFLUCAN [Suspect]
     Dosage: 100 MG PO DAILY
     Route: 048
     Dates: start: 20080307

REACTIONS (9)
  - DEHYDRATION [None]
  - FAILURE TO THRIVE [None]
  - HEPATITIS ACUTE [None]
  - METABOLIC ACIDOSIS [None]
  - OESOPHAGITIS [None]
  - PNEUMONIA [None]
  - RASH [None]
  - RENAL FAILURE ACUTE [None]
  - TUBULOINTERSTITIAL NEPHRITIS [None]
